FAERS Safety Report 14605907 (Version 2)
Quarter: 2018Q2

REPORT INFORMATION
  Report Type: Spontaneous
  Country: FR (occurrence: FR)
  Receive Date: 20180306
  Receipt Date: 20180403
  Transmission Date: 20180711
  Serious: Yes (Other)
  Sender: FDA-Public Use
  Company Number: FR-MERCK KGAA-2043126

PATIENT
  Age: 62 Year
  Sex: Female
  Weight: 64 kg

DRUGS (1)
  1. NOVOTHYROX [Suspect]
     Active Substance: LEVOTHYROXINE SODIUM
     Indication: AUTOIMMUNE THYROIDITIS
     Route: 048
     Dates: start: 20170403, end: 20170901

REACTIONS (7)
  - Gastrooesophageal reflux disease [Recovering/Resolving]
  - Muscle spasms [Recovering/Resolving]
  - Angioedema [Recovering/Resolving]
  - Arthralgia [Recovering/Resolving]
  - Abdominal pain upper [Recovering/Resolving]
  - Blood thyroid stimulating hormone normal [Recovered/Resolved]
  - Fatigue [Recovering/Resolving]

NARRATIVE: CASE EVENT DATE: 201704
